FAERS Safety Report 7522438-6 (Version None)
Quarter: 2011Q2

REPORT INFORMATION
  Report Type: 
  Country: None (occurrence: None)
  Receive Date: 20110603
  Receipt Date: 20110524
  Transmission Date: 20111010
  Serious: Yes (Hospitalization)
  Sender: FDA-Public Use
  Company Number: HU-ROCHE-776558

PATIENT
  Sex: Female

DRUGS (4)
  1. PACLITAXEL [Suspect]
     Indication: BREAST CANCER
     Dosage: FREQUENCY:DAYS 1, 8 AND 15, EVERY 4 WEEKS AS PER PROTOCOL
     Route: 065
     Dates: start: 20091207, end: 20100913
  2. BEVACIZUMAB [Suspect]
     Indication: BREAST CANCER
     Dosage: LAST DOSE PRIOR TO SAE :16 AUG 2010,DAYS 1 AND 15, EVERY 4 WEEKS AS PER PROTOCOL
     Route: 042
     Dates: start: 20091207
  3. BEVACIZUMAB [Suspect]
     Dosage: DOSE DELAYED, RESTARTED
     Route: 042
     Dates: start: 20100924
  4. IBANDRONATE SODIUM [Suspect]
     Route: 065
     Dates: start: 20091105, end: 20100914

REACTIONS (1)
  - TOOTHACHE [None]
